FAERS Safety Report 5486430-8 (Version None)
Quarter: 2007Q3

REPORT INFORMATION
  Report Type: 
  Country: None (occurrence: None)
  Receive Date: 20070918
  Receipt Date: 20070711
  Transmission Date: 20080115
  Serious: Yes (Disabling)
  Sender: FDA-Public Use
  Company Number: 13781950

PATIENT
  Sex: Female
  Weight: 70.29 kg

DRUGS (8)
  1. EMSAM [Suspect]
     Indication: DEPRESSION
     Dosage: 6 MILLIGRAM,1/1 DAY TD
     Route: 062
     Dates: start: 20070130
  2. NEXIUM [Concomitant]
  3. FEXOFENADINE HCL [Concomitant]
  4. CRESTOR [Concomitant]
  5. LORAZEPAM [Concomitant]
  6. ADVAIR DISKUS 100/50 [Concomitant]
  7. MICARDIS [Concomitant]
  8. MUCINEX [Concomitant]

REACTIONS (2)
  - ANXIETY [None]
  - DEPRESSION [None]
